FAERS Safety Report 6718565-3 (Version None)
Quarter: 2010Q2

REPORT INFORMATION
  Report Type: 
  Country: None (occurrence: None)
  Receive Date: 20100503
  Receipt Date: 20100419
  Transmission Date: 20101027
  Serious: Yes (Death, Hospitalization)
  Sender: FDA-Public Use
  Company Number: 2009AC000216

PATIENT
  Age: 74 Year
  Sex: Male
  Weight: 88.905 kg

DRUGS (26)
  1. DIGOXIN [Suspect]
     Dosage: 0.125 MG;QD;PO
     Route: 048
     Dates: start: 20030601, end: 20060601
  2. DIGOXIN [Suspect]
     Dosage: 0.25 MG;QD;PO
     Route: 048
     Dates: start: 19950501, end: 19980601
  3. METOPROLOL [Concomitant]
  4. LISINOPRIL [Concomitant]
  5. SOTALOL HCL [Concomitant]
  6. ALLOPURINOL [Concomitant]
  7. WARFARIN SODIUM [Concomitant]
  8. FUROSEMIDE [Concomitant]
  9. FOLATE [Concomitant]
  10. DIAZEPAM [Concomitant]
  11. TYLENOL-500 [Concomitant]
  12. COUMADIN [Concomitant]
  13. ZESTRIL [Concomitant]
  14. NITROGLYCERIN [Concomitant]
  15. LOPRESSOR [Concomitant]
  16. LORAZEPAM [Concomitant]
  17. LASIX [Concomitant]
  18. NITROGLYCERIN [Concomitant]
  19. SOTALOL HCL [Concomitant]
  20. BETAPACE [Concomitant]
  21. ZOCOR [Concomitant]
  22. TYLENOL-500 [Concomitant]
  23. FOLIC ACID [Concomitant]
  24. FLOXIN [Concomitant]
  25. PRILOSEC [Concomitant]
  26. DARVOCET [Concomitant]

REACTIONS (32)
  - ANAEMIA [None]
  - ANXIETY [None]
  - AORTIC VALVE INCOMPETENCE [None]
  - ARTERIOSCLEROSIS CORONARY ARTERY [None]
  - ATRIAL FIBRILLATION [None]
  - AZOTAEMIA [None]
  - BALANCE DISORDER [None]
  - CARDIAC ARREST [None]
  - CARDIAC FAILURE CONGESTIVE [None]
  - CARDIAC VALVE DISEASE [None]
  - CARDIOMYOPATHY [None]
  - CATARACT NUCLEAR [None]
  - DIVERTICULITIS [None]
  - DYSURIA [None]
  - ECONOMIC PROBLEM [None]
  - EMOTIONAL DISTRESS [None]
  - FALL [None]
  - HYPERLIPIDAEMIA [None]
  - INJURY [None]
  - ISCHAEMIC CARDIOMYOPATHY [None]
  - JOINT EFFUSION [None]
  - MICTURITION URGENCY [None]
  - PAIN [None]
  - PERICARDIAL EFFUSION [None]
  - POLLAKIURIA [None]
  - PULMONARY HYPERTENSION [None]
  - RENAL FAILURE [None]
  - SOCIAL AVOIDANT BEHAVIOUR [None]
  - SUDDEN DEATH [None]
  - TREATMENT NONCOMPLIANCE [None]
  - UNEVALUABLE EVENT [None]
  - UPPER RESPIRATORY TRACT INFECTION [None]
